FAERS Safety Report 15282344 (Version 1)
Quarter: 2018Q3

REPORT INFORMATION
  Report Type: Report from Study
  Country: US (occurrence: US)
  Receive Date: 20180816
  Receipt Date: 20180816
  Transmission Date: 20181010
  Serious: Yes (Other)
  Sender: FDA-Public Use
  Company Number: US-SUN PHARMACEUTICAL INDUSTRIES LTD-2018US-181454

PATIENT
  Age: 63 Year

DRUGS (1)
  1. PHENYTOIN. [Suspect]
     Active Substance: PHENYTOIN
     Indication: PRODUCT USED FOR UNKNOWN INDICATION
     Dosage: UNK
     Route: 065

REACTIONS (5)
  - Vestibular disorder [Recovering/Resolving]
  - Toxicity to various agents [Recovering/Resolving]
  - Ataxia [Recovering/Resolving]
  - Nystagmus [Recovering/Resolving]
  - Overdose [Recovering/Resolving]
